FAERS Safety Report 23968597 (Version 1)
Quarter: 2024Q2

REPORT INFORMATION
  Report Type: Spontaneous
  Country: GB (occurrence: GB)
  Receive Date: 20240612
  Receipt Date: 20240612
  Transmission Date: 20240716
  Serious: Yes (Hospitalization, Other)
  Sender: FDA-Public Use
  Company Number: GB-SANDOZ-NVSC2023GB148009

PATIENT
  Age: 88 Year
  Sex: Female
  Weight: 88 kg

DRUGS (87)
  1. ADALIMUMAB [Suspect]
     Active Substance: ADALIMUMAB\ISOPROPYL ALCOHOL
     Indication: Product used for unknown indication
     Dosage: FORM OF ADMIN.- OROMUCOSAL SUSPENSION
  2. ADALIMUMAB [Suspect]
     Active Substance: ADALIMUMAB\ISOPROPYL ALCOHOL
     Dosage: FORM OF ADMIN.- OROMUCOSAL SUSPENSION
  3. ADALIMUMAB [Suspect]
     Active Substance: ADALIMUMAB\ISOPROPYL ALCOHOL
     Dosage: FORM OF ADMIN.- OROMUCOSAL SUSPENSION
  4. ADALIMUMAB [Suspect]
     Active Substance: ADALIMUMAB\ISOPROPYL ALCOHOL
     Dosage: FORM OF ADMIN.- OROMUCOSAL SUSPENSION
  5. ADALIMUMAB [Suspect]
     Active Substance: ADALIMUMAB\ISOPROPYL ALCOHOL
     Dosage: FORM OF ADMIN.- OROMUCOSAL SUSPENSION
  6. ADALIMUMAB [Suspect]
     Active Substance: ADALIMUMAB\ISOPROPYL ALCOHOL
     Dosage: FORM OF ADMIN.- OROMUCOSAL SUSPENSION
  7. ADALIMUMAB [Suspect]
     Active Substance: ADALIMUMAB\ISOPROPYL ALCOHOL
     Dosage: FORM OF ADMIN.- OROMUCOSAL SUSPENSION
  8. ADALIMUMAB [Suspect]
     Active Substance: ADALIMUMAB\ISOPROPYL ALCOHOL
     Dosage: FORM OF ADMIN.- OROMUCOSAL SUSPENSION
  9. ADALIMUMAB [Suspect]
     Active Substance: ADALIMUMAB\ISOPROPYL ALCOHOL
     Dosage: FORM OF ADMIN.- OROMUCOSAL SUSPENSION
  10. ADALIMUMAB [Suspect]
     Active Substance: ADALIMUMAB\ISOPROPYL ALCOHOL
     Dosage: UNK?FORM OF ADMIN.- OROMUCOSAL SUSPENSION
  11. ADALIMUMAB [Suspect]
     Active Substance: ADALIMUMAB\ISOPROPYL ALCOHOL
     Dosage: ADDITIONAL INFORMATION ON DRUG: DOSAGE1: UNIT=NOT AVAILABLE?FORM OF ADMIN.- OROMUCOSAL SUSPENSION
  12. ADALIMUMAB [Suspect]
     Active Substance: ADALIMUMAB\ISOPROPYL ALCOHOL
     Dosage: FORM OF ADMIN.- OROMUCOSAL SUSPENSION
  13. ADALIMUMAB [Suspect]
     Active Substance: ADALIMUMAB\ISOPROPYL ALCOHOL
     Dosage: FORM OF ADMIN.- OROMUCOSAL SUSPENSION
  14. ADALIMUMAB [Suspect]
     Active Substance: ADALIMUMAB\ISOPROPYL ALCOHOL
     Dosage: UNK?FORM OF ADMIN.- SOLUTION FOR INJECTION
     Route: 065
  15. METHOTREXATE [Suspect]
     Active Substance: METHOTREXATE
     Indication: Colitis
     Dosage: UNK
  16. METHOTREXATE [Suspect]
     Active Substance: METHOTREXATE
     Indication: Colitis
     Dosage: UNK
     Route: 065
  17. REMICADE [Suspect]
     Active Substance: INFLIXIMAB
     Indication: Colitis
     Dosage: UNK (INTRAVENOUS DRIP)?FORM OF ADMIN.- SOLUTION FOR PROVOCATION TEST
     Route: 041
  18. REMICADE [Suspect]
     Active Substance: INFLIXIMAB
     Indication: Colitis
     Dosage: UNK?FORM OF ADMIN.- SOLUTION FOR PROVOCATION TEST
     Route: 042
  19. REMICADE [Suspect]
     Active Substance: INFLIXIMAB
     Dosage: UNK (INTRAVENOUS DRIP)?FORM OF ADMIN.- SOLUTION FOR PROVOCATION TEST
     Route: 041
  20. REMICADE [Suspect]
     Active Substance: INFLIXIMAB
     Dosage: 10 MILLIGRAM/KILOGRAM, Q8WK?FORM OF ADMIN.- SOLUTION FOR PROVOCATION TEST
     Route: 042
  21. REMICADE [Suspect]
     Active Substance: INFLIXIMAB
     Dosage: 10 MILLIGRAM/KILOGRAM, Q8WK?FORM OF ADMIN.- SOLUTION FOR PROVOCATION TEST
     Route: 042
  22. REMICADE [Suspect]
     Active Substance: INFLIXIMAB
     Dosage: UNK?FORM OF ADMIN.- SOLUTION FOR PROVOCATION TEST
     Route: 042
  23. REMICADE [Suspect]
     Active Substance: INFLIXIMAB
     Dosage: UNK?FORM OF ADMIN.- SOLUTION FOR PROVOCATION TEST
     Route: 042
  24. REMICADE [Suspect]
     Active Substance: INFLIXIMAB
     Dosage: UNK?FORM OF ADMIN.- SOLUTION FOR PROVOCATION TEST
     Route: 042
  25. REMICADE [Suspect]
     Active Substance: INFLIXIMAB
     Dosage: UNK (INTRAVENOUS DRIP)?FORM OF ADMIN.- SOLUTION FOR PROVOCATION TEST
     Route: 041
  26. REMICADE [Suspect]
     Active Substance: INFLIXIMAB
     Dosage: UNK?FORM OF ADMIN.- SOLUTION FOR PROVOCATION TEST
     Route: 042
  27. REMICADE [Suspect]
     Active Substance: INFLIXIMAB
     Dosage: UNK?FORM OF ADMIN.- SOLUTION FOR PROVOCATION TEST
     Route: 042
  28. REMICADE [Suspect]
     Active Substance: INFLIXIMAB
     Dosage: UNK?FORM OF ADMIN.- SOLUTION FOR PROVOCATION TEST
     Route: 042
  29. REMICADE [Suspect]
     Active Substance: INFLIXIMAB
     Dosage: UNK?FORM OF ADMIN.- SOLUTION FOR PROVOCATION TEST
     Route: 042
     Dates: start: 20200407, end: 20230501
  30. REMICADE [Suspect]
     Active Substance: INFLIXIMAB
     Dosage: UNK (INTRAVENOUS DRIP)?FORM OF ADMIN.- POWDER FOR CONCENTRATE FOR SOLUTION FOR INFUSION
     Route: 042
  31. REMICADE [Suspect]
     Active Substance: INFLIXIMAB
     Dosage: UNK?FORM OF ADMIN.- POWDER FOR CONCENTRATE FOR SOLUTION FOR INFUSION
     Route: 065
  32. REMICADE [Suspect]
     Active Substance: INFLIXIMAB
     Dosage: UNK?FORM OF ADMIN.- POWDER FOR CONCENTRATE FOR SOLUTION FOR INFUSION
     Route: 065
  33. REMICADE [Suspect]
     Active Substance: INFLIXIMAB
     Dosage: UNK?FORM OF ADMIN.- POWDER FOR CONCENTRATE FOR SOLUTION FOR INFUSION
     Route: 065
  34. REMICADE [Suspect]
     Active Substance: INFLIXIMAB
     Dosage: UNK?FORM OF ADMIN.- POWDER FOR CONCENTRATE FOR SOLUTION FOR INFUSION
     Route: 065
  35. REMICADE [Suspect]
     Active Substance: INFLIXIMAB
     Dosage: UNK?FORM OF ADMIN.- POWDER FOR CONCENTRATE FOR SOLUTION FOR INFUSION
     Route: 065
  36. REMICADE [Suspect]
     Active Substance: INFLIXIMAB
     Dosage: UNK?FORM OF ADMIN.- POWDER FOR CONCENTRATE FOR SOLUTION FOR INFUSION
     Route: 065
  37. REMICADE [Suspect]
     Active Substance: INFLIXIMAB
     Dosage: UNK?FORM OF ADMIN.- POWDER FOR CONCENTRATE FOR SOLUTION FOR INFUSION
     Route: 065
  38. REMICADE [Suspect]
     Active Substance: INFLIXIMAB
     Dosage: UNK?FORM OF ADMIN.- POWDER FOR CONCENTRATE FOR SOLUTION FOR INFUSION
     Route: 065
  39. REMICADE [Suspect]
     Active Substance: INFLIXIMAB
     Dosage: UNK  (INTRAVENOUS DRIP)?FORM OF ADMIN.- POWDER FOR CONCENTRATE FOR SOLUTION FOR INFUSION
     Route: 042
  40. REMICADE [Suspect]
     Active Substance: INFLIXIMAB
     Dosage: UNK?FORM OF ADMIN.- POWDER FOR CONCENTRATE FOR SOLUTION FOR INFUSION
     Route: 065
  41. REMICADE [Suspect]
     Active Substance: INFLIXIMAB
     Dosage: UNK?FORM OF ADMIN.- POWDER FOR CONCENTRATE FOR SOLUTION FOR INFUSION
     Route: 065
  42. REMICADE [Suspect]
     Active Substance: INFLIXIMAB
     Dosage: UNK?FORM OF ADMIN.- POWDER FOR CONCENTRATE FOR SOLUTION FOR INFUSION
     Route: 042
  43. REMICADE [Suspect]
     Active Substance: INFLIXIMAB
     Dosage: UNK?FORM OF ADMIN.- POWDER FOR CONCENTRATE FOR SOLUTION FOR INFUSION
     Route: 065
  44. REMICADE [Suspect]
     Active Substance: INFLIXIMAB
     Dosage: UNK (INTRAVENOUS DRIP)?FORM OF ADMIN. - SOLUTION FOR INFUSION
     Route: 042
  45. METHOTREXATE SODIUM [Suspect]
     Active Substance: METHOTREXATE SODIUM
     Indication: Colitis
     Dosage: UNK
     Route: 065
  46. INFLIXIMAB [Suspect]
     Active Substance: INFLIXIMAB
     Indication: Colitis
     Dosage: 10 MG/KG, Q8W (10 MILLIGRAM/KILOGRAM, Q8WK)?FORM OF ADMIN.- SOLUTION FOR PROVOCATION TEST
     Route: 065
     Dates: start: 20200407, end: 20230501
  47. INFLIXIMAB [Suspect]
     Active Substance: INFLIXIMAB
     Indication: Colitis
     Dosage: 7 MG/KG, QW (10 MILLIGRAM/KILOGRAM, Q8WK)?FORM OF ADMIN.- SOLUTION FOR PROVOCATION TEST
     Route: 065
     Dates: start: 20200407, end: 20230501
  48. INFLIXIMAB [Suspect]
     Active Substance: INFLIXIMAB
     Dosage: 199.821 MILLIGRAM/KILOGRAM (3 YEARS)?FORM OF ADMIN.- SOLUTION FOR PROVOCATION TEST
  49. INFLIXIMAB [Suspect]
     Active Substance: INFLIXIMAB
     Dosage: 7 MILLIGRAM/KILOGRAM (199.82 MILLIGRAM/KILOGRAM (3 YEARS)?FORM OF ADMIN.- SOLUTION FOR PROVOCATION T
  50. INFLIXIMAB [Suspect]
     Active Substance: INFLIXIMAB
     Dosage: 7 MG/KG?FORM OF ADMIN.- SOLUTION FOR PROVOCATION TEST
  51. INFLIXIMAB [Suspect]
     Active Substance: INFLIXIMAB
     Dosage: 7 MG/KG?FORM OF ADMIN.- SOLUTION FOR PROVOCATION TEST
  52. INFLIXIMAB [Suspect]
     Active Substance: INFLIXIMAB
     Dosage: 7 MG/KG?FORM OF ADMIN.- SOLUTION FOR PROVOCATION TEST
  53. INFLIXIMAB [Suspect]
     Active Substance: INFLIXIMAB
     Dosage: 7 MG/KG?FORM OF ADMIN.- SOLUTION FOR PROVOCATION TEST
  54. INFLIXIMAB [Suspect]
     Active Substance: INFLIXIMAB
     Dosage: 7 MG/KG?FORM OF ADMIN.- SOLUTION FOR PROVOCATION TEST
  55. INFLIXIMAB [Suspect]
     Active Substance: INFLIXIMAB
     Dosage: 7 MG/KG?FORM OF ADMIN.- SOLUTION FOR PROVOCATION TEST
  56. INFLIXIMAB [Suspect]
     Active Substance: INFLIXIMAB
     Dosage: UNK?FORM OF ADMIN.- SOLUTION FOR PROVOCATION TEST
  57. INFLIXIMAB [Suspect]
     Active Substance: INFLIXIMAB
     Dosage: UNK?FORM OF ADMIN.- SOLUTION FOR PROVOCATION TEST
  58. INFLIXIMAB [Suspect]
     Active Substance: INFLIXIMAB
     Dosage: UNK?FORM OF ADMIN.- SOLUTION FOR PROVOCATION TEST
  59. INFLIXIMAB [Suspect]
     Active Substance: INFLIXIMAB
     Dosage: 7 MG/KG?FORM OF ADMIN.- SOLUTION FOR PROVOCATION TEST
  60. INFLIXIMAB [Suspect]
     Active Substance: INFLIXIMAB
     Dosage: 7 MILLIGRAM/KILOGRAM (199.82 MILLIGRAM/KILOGRAM / 199.821 MILLIGRAM/KILOGRAM (3 YEARS)?FORM OF ADMIN
  61. INFLIXIMAB [Suspect]
     Active Substance: INFLIXIMAB
     Dosage: 7 MILLIGRAM/KILOGRAM (199.821 MILLIGRAM/KILOGRAM (3 YEARS)/(CUMULATIVE DOSE TO FIRST REACTION: 1119
  62. INFLIXIMAB [Suspect]
     Active Substance: INFLIXIMAB
     Dosage: 199.821 MILLIGRAM/KILOGRAM (3 YEARS)?FORM OF ADMIN.- SOLUTION FOR PROVOCATION TEST
  63. INFLIXIMAB [Suspect]
     Active Substance: INFLIXIMAB
     Dosage: 7 MG/KG
     Route: 065
  64. INFLIXIMAB [Suspect]
     Active Substance: INFLIXIMAB
     Dosage: 7 MG/KG
     Route: 065
  65. INFLIXIMAB [Suspect]
     Active Substance: INFLIXIMAB
     Dosage: 7 MG/KG
     Route: 065
  66. INFLIXIMAB [Suspect]
     Active Substance: INFLIXIMAB
     Dosage: 199.821 MG/KG (3 YEARS)
     Route: 065
  67. INFLIXIMAB [Suspect]
     Active Substance: INFLIXIMAB
     Dosage: 7 MG/KG
     Route: 065
  68. INFLIXIMAB [Suspect]
     Active Substance: INFLIXIMAB
     Dosage: 7 MG/KG
     Route: 065
  69. INFLIXIMAB [Suspect]
     Active Substance: INFLIXIMAB
     Dosage: 7 MG/KG
     Route: 065
  70. INFLIXIMAB [Suspect]
     Active Substance: INFLIXIMAB
     Dosage: UNK
     Route: 065
  71. INFLIXIMAB [Suspect]
     Active Substance: INFLIXIMAB
     Dosage: UNK
     Route: 065
  72. INFLIXIMAB [Suspect]
     Active Substance: INFLIXIMAB
     Dosage: 199.82 MG/KG
     Route: 065
  73. INFLIXIMAB [Suspect]
     Active Substance: INFLIXIMAB
     Dosage: UNK
     Route: 065
  74. INFLIXIMAB [Suspect]
     Active Substance: INFLIXIMAB
     Dosage: 7 MG/KG
     Route: 065
  75. INFLIXIMAB [Suspect]
     Active Substance: INFLIXIMAB
     Dosage: 7 MG/KG
     Route: 065
  76. INFLIXIMAB [Suspect]
     Active Substance: INFLIXIMAB
     Dosage: 7 MG/KG
     Route: 065
  77. INFLIXIMAB [Suspect]
     Active Substance: INFLIXIMAB
     Dosage: 199.82 MG/KG
     Route: 065
  78. INFLIXIMAB [Suspect]
     Active Substance: INFLIXIMAB
     Dosage: 7 MG/KG (7 MILLIGRAM/KILOGRAM)
     Route: 065
  79. INFLIXIMAB [Suspect]
     Active Substance: INFLIXIMAB
     Indication: Colitis
     Dosage: 10 MILLIGRAM/KILOGRAM, Q8WK?FORM OF ADMIN.- NASAL SPRAY, SOLUTION
  80. INFLIXIMAB [Suspect]
     Active Substance: INFLIXIMAB
     Indication: Colitis
     Dosage: 10 MG/KG. Q8W?FORM OF ADMIN.- NASAL SPRAY, SOLUTION
  81. INFLIXIMAB [Suspect]
     Active Substance: INFLIXIMAB
     Dosage: 10 MG/KG. Q8W?FORM OF ADMIN.- NASAL SPRAY, SOLUTION
  82. INFLIXIMAB [Suspect]
     Active Substance: INFLIXIMAB
     Dosage: UNK?FORM OF ADMIN.- NASAL SPRAY, SOLUTION
  83. INFLIXIMAB [Suspect]
     Active Substance: INFLIXIMAB
     Dosage: UNK?FORM OF ADMIN.- NASAL SPRAY, SOLUTION
  84. INFLIXIMAB [Suspect]
     Active Substance: INFLIXIMAB
     Dosage: 10 MG/KG, Q8W?FORM OF ADMIN.- POWDER FOR CONCENTRATE FOR SOLUTION FOR INFUSION
     Route: 065
  85. INFLIXIMAB [Suspect]
     Active Substance: INFLIXIMAB
     Dosage: FORM OF ADMIN. - POWDER FOR CONCENTRATE FOR SOLUTION FOR INFUSION?UNK
     Route: 065
  86. METHOTREXATE [Concomitant]
     Active Substance: METHOTREXATE
     Indication: Colitis
     Dosage: UNK
  87. METHOTREXATE [Concomitant]
     Active Substance: METHOTREXATE
     Indication: Colitis

REACTIONS (6)
  - Streptococcal sepsis [Recovering/Resolving]
  - Streptococcal infection [Recovering/Resolving]
  - Sepsis [Recovering/Resolving]
  - Arthritis bacterial [Recovering/Resolving]
  - Overdose [Unknown]
  - Product use in unapproved indication [Unknown]

NARRATIVE: CASE EVENT DATE: 20230501
